FAERS Safety Report 9278829 (Version 1)
Quarter: 2013Q2

REPORT INFORMATION
  Report Type: Spontaneous
  Country: TR (occurrence: TR)
  Receive Date: 20130508
  Receipt Date: 20130508
  Transmission Date: 20140414
  Serious: Yes (Hospitalization)
  Sender: FDA-Public Use
  Company Number: PHHY2013TR044869

PATIENT
  Sex: 0

DRUGS (3)
  1. CISPLATIN [Suspect]
     Indication: GASTRIC CANCER
     Dosage: 40 MG, PER DAY FOR 3 DAYS
  2. 5-FLUOROURACIL [Suspect]
     Indication: GASTRIC CANCER
     Dosage: 750 MG, PER DAY FOR 3 DAYS
  3. TAXOTERE [Suspect]
     Indication: GASTRIC CANCER
     Dosage: 120 G, PER DAY FOR INITIAL DAY

REACTIONS (4)
  - Peripheral artery thrombosis [Recovered/Resolved]
  - Paraesthesia [Recovered/Resolved]
  - Pulse absent [Recovered/Resolved]
  - Pallor [Recovered/Resolved]
